FAERS Safety Report 7583012-9 (Version None)
Quarter: 2011Q2

REPORT INFORMATION
  Report Type: 
  Country: None (occurrence: None)
  Receive Date: 20110630
  Receipt Date: 20110621
  Transmission Date: 20111010
  Serious: Yes (Death)
  Sender: FDA-Public Use
  Company Number: FR-BRISTOL-MYERS SQUIBB COMPANY-15863756

PATIENT
  Age: 59 Year
  Sex: Male

DRUGS (4)
  1. ZOLPIDEM [Suspect]
  2. PAROXETINE HCL [Suspect]
  3. METFORMIN HCL [Suspect]
  4. GLICLAZIDE [Suspect]

REACTIONS (1)
  - DEATH [None]
